FAERS Safety Report 11690229 (Version 1)
Quarter: 2015Q4

REPORT INFORMATION
  Report Type: Spontaneous
  Country: US (occurrence: US)
  Receive Date: 20151102
  Receipt Date: 20151102
  Transmission Date: 20160304
  Serious: Yes (Hospitalization)
  Sender: FDA-Public Use
  Company Number: US-BAYER-2015-452986

PATIENT
  Age: 22 Year
  Sex: Female
  Weight: 59.8 kg

DRUGS (17)
  1. EPINEPHRINE. [Concomitant]
     Active Substance: EPINEPHRINE
  2. NARCAN [Concomitant]
     Active Substance: NALOXONE HYDROCHLORIDE
  3. FERROUS SULFATE [Concomitant]
     Active Substance: FERROUS SULFATE\FERROUS SULFATE, DRIED
  4. SOLU-MEDROL [Concomitant]
     Active Substance: METHYLPREDNISOLONE SODIUM SUCCINATE
  5. VANCOMYCIN [Concomitant]
     Active Substance: VANCOMYCIN
  6. YAZ [Suspect]
     Active Substance: DROSPIRENONE\ETHINYL ESTRADIOL
  7. PROPOFOL. [Concomitant]
     Active Substance: PROPOFOL
  8. ATROPINE. [Concomitant]
     Active Substance: ATROPINE
  9. HYDRALAZINE [Concomitant]
     Active Substance: HYDRALAZINE HYDROCHLORIDE
  10. PROTONIX [Concomitant]
     Active Substance: PANTOPRAZOLE SODIUM
  11. PEPCID [Concomitant]
     Active Substance: FAMOTIDINE
  12. ROCEPHIN [Concomitant]
     Active Substance: CEFTRIAXONE SODIUM
  13. LASIX [Concomitant]
     Active Substance: FUROSEMIDE
  14. ALBUTEROL. [Concomitant]
     Active Substance: ALBUTEROL
  15. ZOSYN [Concomitant]
     Active Substance: PIPERACILLIN SODIUM\TAZOBACTAM SODIUM
  16. PREDNISONE. [Concomitant]
     Active Substance: PREDNISONE
  17. METOPROLOL [Concomitant]
     Active Substance: METOPROLOL

REACTIONS (3)
  - Pulmonary embolism [Recovered/Resolved]
  - Cardio-respiratory arrest [None]
  - Pulmonary embolism [None]

NARRATIVE: CASE EVENT DATE: 200811
